FAERS Safety Report 4401158-0 (Version None)
Quarter: 2004Q3

REPORT INFORMATION
  Report Type: 
  Country: None (occurrence: None)
  Receive Date: 20040907
  Receipt Date: 20031124
  Transmission Date: 20050211
  Serious: Yes (Hospitalization, Other)
  Sender: FDA-Public Use
  Company Number: US-BRISTOL-MYERS SQUIBB COMPANY-12442646

PATIENT
  Age: 37 Year
  Sex: Female
  Weight: 81 kg

DRUGS (4)
  1. COUMADIN [Suspect]
     Indication: PULMONARY EMBOLISM
     Route: 048
  2. XANAX [Concomitant]
  3. FLEXERIL [Concomitant]
  4. METHADONE HCL [Concomitant]

REACTIONS (12)
  - ABDOMINAL DISTENSION [None]
  - ARTHRALGIA [None]
  - DIZZINESS [None]
  - INTERNATIONAL NORMALISED RATIO INCREASED [None]
  - JOINT SWELLING [None]
  - LETHARGY [None]
  - MENORRHAGIA [None]
  - NAUSEA [None]
  - OVERDOSE [None]
  - RASH ERYTHEMATOUS [None]
  - VAGINAL HAEMORRHAGE [None]
  - WEIGHT INCREASED [None]
